FAERS Safety Report 5045163-2 (Version None)
Quarter: 2006Q3

REPORT INFORMATION
  Report Type: 
  Country: None (occurrence: None)
  Receive Date: 20060705
  Receipt Date: 20060613
  Transmission Date: 20061208
  Serious: Yes (Other)
  Sender: FDA-Public Use
  Company Number: US200606003377

PATIENT
  Age: 25 Year
  Sex: Female

DRUGS (4)
  1. ZYPREXA [Suspect]
     Indication: SCHIZOPHRENIA
     Dosage: 15 MG
     Dates: start: 20010101, end: 20050101
  2. PAXIL [Concomitant]
  3. TRAZODONE HCL [Concomitant]
  4. RISPERDAL /SWE/(RISPERIDONE) [Concomitant]

REACTIONS (5)
  - DIABETES MELLITUS [None]
  - MALAISE [None]
  - PANCREATIC CYST [None]
  - PANCREATIC NEOPLASM [None]
  - PANCREATITIS [None]
